FAERS Safety Report 10205241 (Version 1)
Quarter: 2014Q2

REPORT INFORMATION
  Report Type: Spontaneous
  Country: US (occurrence: US)
  Receive Date: 20140529
  Receipt Date: 20140529
  Transmission Date: 20141212
  Serious: No
  Sender: FDA-Public Use
  Company Number: US-TEVA-485230USA

PATIENT
  Sex: Female

DRUGS (2)
  1. PLAN B ONE-STEP [Suspect]
     Indication: POST COITAL CONTRACEPTION
     Dosage: 1.5 MILLIGRAM DAILY;
     Route: 048
     Dates: start: 20140427, end: 20140427
  2. BIRTH CONTROL PILL [Concomitant]
     Indication: CONTRACEPTION
     Dosage: QD
     Route: 048

REACTIONS (1)
  - Menstruation delayed [Not Recovered/Not Resolved]
